FAERS Safety Report 7518154-7 (Version None)
Quarter: 2011Q2

REPORT INFORMATION
  Report Type: 
  Country: None (occurrence: None)
  Receive Date: 20110523
  Receipt Date: 20110509
  Transmission Date: 20111010
  Serious: Yes (Other)
  Sender: FDA-Public Use
  Company Number: 2011MA005607

PATIENT
  Age: 35 Year
  Sex: Male

DRUGS (1)
  1. LEVETIRACETAM [Suspect]
     Indication: EPILEPSY
     Dosage: 1500 MG, BID, PO
     Route: 048

REACTIONS (7)
  - PLATELET MORPHOLOGY ABNORMAL [None]
  - CONVULSION [None]
  - RETICULOCYTE COUNT INCREASED [None]
  - THROMBOCYTOPENIA [None]
  - WHITE BLOOD CELL COUNT DECREASED [None]
  - PETECHIAE [None]
  - HAEMOGLOBIN DECREASED [None]
